FAERS Safety Report 8025333-1 (Version None)
Quarter: 2012Q1

REPORT INFORMATION
  Report Type: 
  Country: None (occurrence: None)
  Receive Date: 20120105
  Receipt Date: 20120105
  Transmission Date: 20120608
  Serious: Yes (Other)
  Sender: FDA-Public Use
  Company Number: CH-PFIZER INC-2011286489

PATIENT
  Age: 64 Year
  Sex: Male
  Weight: 100 kg

DRUGS (9)
  1. METFORMIN [Concomitant]
     Indication: DIABETES MELLITUS
     Dosage: 1000 MG, UNK
     Route: 048
  2. LEVOTHYROXINE SODIUM [Concomitant]
     Dosage: 150 UG, UNK
     Route: 048
  3. ASPIRIN [Concomitant]
     Dosage: 100 MG, UNK
     Route: 048
  4. ATORVASTATIN CALCIUM [Suspect]
     Indication: HYPERLIPIDAEMIA
     Dosage: 40 MG, 1X/DAY
     Route: 048
  5. BYETTA [Suspect]
     Indication: TYPE 2 DIABETES MELLITUS
     Dosage: 0.5 MG, 2X/DAY
     Route: 058
     Dates: start: 20110418, end: 20110621
  6. VICTOZA [Suspect]
     Indication: TYPE 2 DIABETES MELLITUS
     Dosage: UNK
     Route: 058
     Dates: start: 20110101, end: 20110101
  7. HYGROTON [Concomitant]
     Dosage: 25 MG, 1X/DAY
     Route: 048
  8. GLIMEPIRIDE [Concomitant]
     Indication: DIABETES MELLITUS
     Dosage: 4 MG, UNK
     Route: 048
  9. LISINOPRIL [Suspect]
     Indication: ESSENTIAL HYPERTENSION
     Dosage: 20 MG, 1X/DAY
     Route: 048

REACTIONS (1)
  - LIPASE INCREASED [None]
